FAERS Safety Report 11888931 (Version 1)
Quarter: 2016Q1

REPORT INFORMATION
  Report Type: Spontaneous
  Country: US (occurrence: US)
  Receive Date: 20160105
  Receipt Date: 20160105
  Transmission Date: 20160526
  Serious: No
  Sender: FDA-Public Use
  Company Number: US-PFIZER INC-2015123818

PATIENT
  Age: 58 Year
  Sex: Female

DRUGS (5)
  1. CALCIUM CARBONATE. [Suspect]
     Active Substance: CALCIUM CARBONATE
  2. MELATONIN [Suspect]
     Active Substance: MELATONIN
  3. SYNTHROID [Suspect]
     Active Substance: LEVOTHYROXINE SODIUM
  4. NORVASC [Suspect]
     Active Substance: AMLODIPINE BESYLATE
  5. PAXIL [Suspect]
     Active Substance: PAROXETINE HYDROCHLORIDE
     Indication: HEADACHE
     Dosage: 20 MG, UNK
     Dates: start: 2013

REACTIONS (1)
  - Drug hypersensitivity [Recovered/Resolved]
